FAERS Safety Report 21273644 (Version 1)
Quarter: 2022Q3

REPORT INFORMATION
  Report Type: Spontaneous
  Country: US (occurrence: None)
  Receive Date: 20220830
  Receipt Date: 20220830
  Transmission Date: 20221026
  Serious: No
  Sender: FDA-Public Use
  Company Number: None

PATIENT
  Age: 86 Year
  Sex: Female

DRUGS (1)
  1. XELJANZ XR [Suspect]
     Active Substance: TOFACITINIB CITRATE
     Indication: Rheumatoid arthritis
     Dosage: ? TAKE 1 TABLET BY MOUTH DAILY  AS DIRECTED
     Route: 048
     Dates: start: 202012

REACTIONS (2)
  - Urinary tract infection [None]
  - Therapy interrupted [None]
